FAERS Safety Report 9138256 (Version 1)
Quarter: 2013Q1

REPORT INFORMATION
  Report Type: Spontaneous
  Country: CO (occurrence: CO)
  Receive Date: 20130305
  Receipt Date: 20130305
  Transmission Date: 20140127
  Serious: Yes (Other)
  Sender: FDA-Public Use
  Company Number: CO-AMGEN-COLSP2013014713

PATIENT
  Age: 60 Year
  Sex: Female

DRUGS (6)
  1. ENBREL [Suspect]
     Indication: RHEUMATOID ARTHRITIS
     Dosage: 50 MG, WEEKLY
     Route: 058
     Dates: start: 2011, end: 201210
  2. ENBREL [Suspect]
     Dosage: 50 MG, WEEKLY
     Route: 058
     Dates: start: 201211
  3. ARAVA [Concomitant]
     Indication: RHEUMATOID ARTHRITIS
     Dosage: 20 MG, ALTERNATE DAY
     Route: 048
     Dates: start: 2011
  4. OMEPRAZOL                          /00661201/ [Concomitant]
     Indication: GASTRITIS
     Dosage: 20 MG, 1X/DAY IN FAST
     Route: 048
     Dates: start: 2008
  5. PREDNISOLONE [Concomitant]
     Indication: RHEUMATOID ARTHRITIS
     Dosage: 5 MG, 1X/DAY
     Route: 048
     Dates: start: 2010
  6. METHOTREXATE [Concomitant]
     Indication: RHEUMATOID ARTHRITIS
     Dosage: 2.5 MG, 1X/DAY
     Route: 048
     Dates: start: 2010

REACTIONS (6)
  - Arthropathy [Recovered/Resolved]
  - Hypertension [Recovered/Resolved]
  - Fatigue [Not Recovered/Not Resolved]
  - Wheezing [Not Recovered/Not Resolved]
  - Feeling hot [Not Recovered/Not Resolved]
  - Injection site haemorrhage [Recovered/Resolved]
